FAERS Safety Report 13544400 (Version 1)
Quarter: 2017Q2

REPORT INFORMATION
  Report Type: Spontaneous
  Country: US (occurrence: US)
  Receive Date: 20170512
  Receipt Date: 20170512
  Transmission Date: 20170830
  Serious: Yes (Other)
  Sender: FDA-Public Use
  Company Number: None

PATIENT
  Age: 79 Year
  Sex: Female
  Weight: 74 kg

DRUGS (1)
  1. DALVANCE [Suspect]
     Active Substance: DALBAVANCIN

REACTIONS (1)
  - Rash [None]

NARRATIVE: CASE EVENT DATE: 20170508
